FAERS Safety Report 5287876-3 (Version None)
Quarter: 2007Q2

REPORT INFORMATION
  Report Type: 
  Country: None (occurrence: None)
  Receive Date: 20070405
  Receipt Date: 20070320
  Transmission Date: 20071010
  Serious: Yes (Other)
  Sender: FDA-Public Use
  Company Number: CA-JNJFOC-20070305319

PATIENT
  Sex: Female
  Weight: 95.26 kg

DRUGS (4)
  1. REMICADE [Suspect]
     Indication: CROHN'S DISEASE
     Dosage: TOTAL NUMBER OF DOSES:  10
  2. METHOTREXATE [Concomitant]
  3. BENADRYL [Concomitant]
     Indication: PREMEDICATION
     Route: 048
  4. PREDNISONE [Concomitant]
     Indication: PREMEDICATION
     Route: 048

REACTIONS (1)
  - LUPUS-LIKE SYNDROME [None]
